FAERS Safety Report 9374370 (Version 1)
Quarter: 2013Q2

REPORT INFORMATION
  Report Type: Report from Study
  Country: MX (occurrence: MX)
  Receive Date: 20130628
  Receipt Date: 20130628
  Transmission Date: 20140414
  Serious: Yes (Other)
  Sender: FDA-Public Use
  Company Number: PHHY2013MX066507

PATIENT
  Age: 57 Year
  Sex: Male

DRUGS (4)
  1. TEGRETOL [Suspect]
     Indication: CONVULSION
     Dosage: 3 DF, DAILY
     Route: 048
     Dates: start: 201106
  2. TEGRETOL [Suspect]
     Dosage: 1 DF, DAILY
     Route: 048
     Dates: end: 201305
  3. TEGRETOL [Suspect]
     Dosage: 3 DF, DAILY
     Route: 048
     Dates: start: 201305
  4. RIVOTRIL [Concomitant]
     Indication: CONVULSION
     Dosage: 2 MG, UNK
     Dates: start: 201106

REACTIONS (1)
  - Petit mal epilepsy [Unknown]
